FAERS Safety Report 15347599 (Version 2)
Quarter: 2018Q4

REPORT INFORMATION
  Report Type: Spontaneous
  Country: US (occurrence: US)
  Receive Date: 20180904
  Receipt Date: 20181030
  Transmission Date: 20190204
  Serious: Yes (Death)
  Sender: FDA-Public Use
  Company Number: US-ENDO PHARMACEUTICALS INC-2018-040914

PATIENT

DRUGS (2)
  1. SUPPRELIN LA [Suspect]
     Active Substance: HISTRELIN ACETATE
     Indication: PRODUCT USED FOR UNKNOWN INDICATION
     Dosage: 1 IMPLANT, AS DIRECTED EVERY 12 MONTHS
     Route: 058
     Dates: start: 20170921
  2. SUPPRELIN LA [Suspect]
     Active Substance: HISTRELIN ACETATE
     Dosage: 1 IMPLANT, AS DIRECTED EVERY 12 MONTHS
     Route: 058
     Dates: end: 20170818

REACTIONS (1)
  - Death [Fatal]
